FAERS Safety Report 20590903 (Version 2)
Quarter: 2022Q2

REPORT INFORMATION
  Report Type: Report from Study
  Country: US (occurrence: US)
  Receive Date: 20220314
  Receipt Date: 20220425
  Transmission Date: 20220721
  Serious: No
  Sender: FDA-Public Use
  Company Number: US-SA-SAC20220310000208

PATIENT
  Age: 51 Year
  Sex: Male

DRUGS (1)
  1. AUBAGIO [Suspect]
     Active Substance: TERIFLUNOMIDE
     Indication: Multiple sclerosis
     Dosage: 14 MG, QD
     Route: 048
     Dates: start: 20211022

REACTIONS (6)
  - Abdominal pain [Not Recovered/Not Resolved]
  - Therapy cessation [Unknown]
  - Adverse event [Not Recovered/Not Resolved]
  - Fatigue [Unknown]
  - Eye colour change [Unknown]
  - Nausea [Unknown]
